FAERS Safety Report 7528403-7 (Version None)
Quarter: 2011Q2

REPORT INFORMATION
  Report Type: 
  Country: None (occurrence: None)
  Receive Date: 20110607
  Receipt Date: 20100719
  Transmission Date: 20111010
  Serious: No
  Sender: FDA-Public Use
  Company Number: US-ASTRAZENECA-2010SE34915

PATIENT
  Sex: Male

DRUGS (1)
  1. PRILOSEC OTC [Suspect]
     Dosage: 1 TABLET, 1 /DAY FOR 10 DAYS
     Route: 048
     Dates: start: 20100708, end: 20100717

REACTIONS (4)
  - ARTHRALGIA [None]
  - PRURITUS GENERALISED [None]
  - JOINT SWELLING [None]
  - RASH GENERALISED [None]
